FAERS Safety Report 9014364 (Version 1)
Quarter: 2013Q1

REPORT INFORMATION
  Report Type: Spontaneous
  Country: US (occurrence: US)
  Receive Date: 20130115
  Receipt Date: 20130115
  Transmission Date: 20140127
  Serious: No
  Sender: FDA-Public Use
  Company Number: US-PFIZER INC-2013015625

PATIENT
  Age: 52 Year
  Sex: Female
  Weight: 72 kg

DRUGS (9)
  1. CHANTIX [Suspect]
     Indication: SMOKING CESSATION THERAPY
     Dosage: 0.5 MG, DAILY
     Dates: start: 201201, end: 201203
  2. CHANTIX [Suspect]
     Dosage: 1 MG, 2X/DAY
     Dates: start: 20130107
  3. ZOCOR [Concomitant]
     Indication: BLOOD CHOLESTEROL ABNORMAL
     Dosage: UNK
  4. TRAZODONE [Concomitant]
     Indication: DEPRESSION
     Dosage: UNK
  5. VITAMINS [Concomitant]
     Indication: SUPPLEMENTATION THERAPY
     Dosage: UNK
  6. MULTIVITAMINS [Concomitant]
     Indication: SUPPLEMENTATION THERAPY
     Dosage: UNK
  7. FUROSEMIDE [Concomitant]
     Dosage: UNK
  8. AMBIEN [Concomitant]
     Indication: INSOMNIA
     Dosage: UNK
  9. MELATONIN [Concomitant]
     Indication: INSOMNIA
     Dosage: UNK

REACTIONS (1)
  - Nausea [Not Recovered/Not Resolved]
